FAERS Safety Report 23186114 (Version 1)
Quarter: 2023Q4

REPORT INFORMATION
  Report Type: Spontaneous
  Country: RU (occurrence: RU)
  Receive Date: 20231115
  Receipt Date: 20231115
  Transmission Date: 20240110
  Serious: Yes (Other)
  Sender: FDA-Public Use
  Company Number: RU-ALXN-202311RUS000067RU

PATIENT

DRUGS (1)
  1. ULTOMIRIS [Suspect]
     Active Substance: RAVULIZUMAB-CWVZ
     Indication: Paroxysmal nocturnal haemoglobinuria
     Dosage: 3300 MILLIGRAM PER MILLILITRE, QW
     Route: 041

REACTIONS (3)
  - Breakthrough haemolysis [Recovered/Resolved]
  - Anaphylactoid reaction [Unknown]
  - Infection [Unknown]
